FAERS Safety Report 20181364 (Version 1)
Quarter: 2021Q4

REPORT INFORMATION
  Report Type: Other
  Country: US (occurrence: US)
  Receive Date: 20211214
  Receipt Date: 20211214
  Transmission Date: 20220304
  Serious: No
  Sender: FDA-Public Use
  Company Number: US-NEUROCRINE BIOSCIENCES INC.-2021NBI07083

PATIENT

DRUGS (1)
  1. INGREZZA [Suspect]
     Active Substance: VALBENAZINE
     Indication: Tardive dyskinesia
     Dosage: 40 MILLIGRAM, QD, 2 CAPSULES DAILY
     Route: 048
     Dates: start: 20171024

REACTIONS (3)
  - Confusional state [Unknown]
  - Oropharyngeal pain [Unknown]
  - Drug ineffective [Unknown]
